FAERS Safety Report 24564156 (Version 2)
Quarter: 2024Q4

REPORT INFORMATION
  Report Type: Spontaneous
  Country: US (occurrence: US)
  Receive Date: 20241030
  Receipt Date: 20241120
  Transmission Date: 20250115
  Serious: Yes (Other)
  Sender: BRISTOL-MYERS SQUIBB COMPANY
  Company Number: US-BRISTOL-MYERS SQUIBB COMPANY-2024-168469

PATIENT
  Age: 88 Year
  Sex: Female
  Weight: 122 kg

DRUGS (4)
  1. ELIQUIS [Suspect]
     Active Substance: APIXABAN
     Indication: Product used for unknown indication
     Dosage: TAKE 1 TABLET (5 MG) BY MOUTH IN THE MORNING AND AT BEDTIME FOR 10 DAYS, DISPENSED 20 TABLETS
     Route: 048
     Dates: start: 20240524
  2. CRESTOR [Concomitant]
     Active Substance: ROSUVASTATIN CALCIUM
     Indication: Product used for unknown indication
     Dosage: IN THE EVENING
     Route: 048
     Dates: start: 20240603
  3. AMIODARONE [Concomitant]
     Active Substance: AMIODARONE
     Indication: Heart failure with reduced ejection fraction
     Dates: start: 202404
  4. LEVOXYL [Concomitant]
     Active Substance: LEVOTHYROXINE SODIUM
     Indication: Product used for unknown indication
     Dosage: TAKE 1 TABLET (125 MCG) BY MOUTH BEFORE BREAKFAST
     Route: 048
     Dates: start: 20240612, end: 20240821

REACTIONS (2)
  - Cardiac amyloidosis [Unknown]
  - Obstructive sleep apnoea syndrome [Unknown]
